FAERS Safety Report 8265830-7 (Version None)
Quarter: 2012Q2

REPORT INFORMATION
  Report Type: 
  Country: None (occurrence: None)
  Receive Date: 20120406
  Receipt Date: 20120328
  Transmission Date: 20120825
  Serious: Yes (Other)
  Sender: FDA-Public Use
  Company Number: CH-ASTRAZENECA-2012SE20984

PATIENT
  Age: 51 Year
  Sex: Male

DRUGS (5)
  1. METOPROLOL TARTRATE AND HYDROCHLOROTHIAZIDE [Suspect]
     Route: 048
     Dates: start: 20120308, end: 20120313
  2. CORDARONE [Suspect]
     Route: 048
     Dates: start: 20120308
  3. ALDACTONE [Suspect]
     Route: 048
     Dates: start: 20120308
  4. ENALAPRIL MALEATE [Concomitant]
     Route: 048
     Dates: start: 20120308
  5. SINTROM [Suspect]
     Dosage: AS NECESSARY
     Route: 048
     Dates: start: 20120308

REACTIONS (2)
  - RASH PRURITIC [None]
  - TOXIC SKIN ERUPTION [None]
